FAERS Safety Report 8960854 (Version 1)
Quarter: 2012Q4

REPORT INFORMATION
  Report Type: 
  Country: US (occurrence: US)
  Receive Date: 20121213
  Receipt Date: 20121213
  Transmission Date: 20130627
  Serious: No
  Sender: FDA-Public Use
  Company Number: US-MYLANLABS-2012S1018381

PATIENT
  Age: 52 Year
  Sex: Female
  Weight: 102.06 kg

DRUGS (4)
  1. FLUVOXAMINE MALEATE [Suspect]
     Indication: OBSESSIVE-COMPULSIVE DISORDER
     Route: 048
  2. SEROQUEL [Concomitant]
  3. CLOMIPRAMINE [Concomitant]
  4. FLUOXETINE [Concomitant]

REACTIONS (5)
  - Memory impairment [Not Recovered/Not Resolved]
  - Muscle spasms [Not Recovered/Not Resolved]
  - Tremor [Not Recovered/Not Resolved]
  - Alopecia [Not Recovered/Not Resolved]
  - Incorrect storage of drug [Not Recovered/Not Resolved]
